FAERS Safety Report 5127385-5 (Version None)
Quarter: 2006Q4

REPORT INFORMATION
  Report Type: 
  Country: None (occurrence: None)
  Receive Date: 20061012
  Receipt Date: 20061012
  Transmission Date: 20070319
  Serious: Yes (Other)
  Sender: FDA-Public Use
  Company Number: None

PATIENT
  Age: 57 Year
  Sex: Male
  Weight: 116.5744 kg

DRUGS (1)
  1. VIVAGLOBIN [Suspect]
     Indication: IMMUNODEFICIENCY COMMON VARIABLE
     Dosage: 9.6 GM SUB Q VIA 3 SITES Q WEEK
     Route: 058
     Dates: start: 20061011

REACTIONS (6)
  - DIZZINESS [None]
  - INFLUENZA LIKE ILLNESS [None]
  - INFUSION RELATED REACTION [None]
  - INFUSION SITE PAIN [None]
  - INFUSION SITE SWELLING [None]
  - THINKING ABNORMAL [None]
